FAERS Safety Report 19484017 (Version 1)
Quarter: 2021Q3

REPORT INFORMATION
  Report Type: Other
  Country: US (occurrence: US)
  Receive Date: 20210701
  Receipt Date: 20210701
  Transmission Date: 20211014
  Serious: Yes (Life-Threatening, Hospitalization)
  Sender: FDA-Public Use
  Company Number: US-NOSTRUM LABORATORIES, INC.-2113384

PATIENT
  Age: 33 Year
  Sex: Male

DRUGS (2)
  1. LEVETIRACETAM. [Suspect]
     Active Substance: LEVETIRACETAM
     Indication: GENERALISED TONIC-CLONIC SEIZURE
     Route: 042
  2. HALOPERIDOL. [Concomitant]
     Active Substance: HALOPERIDOL
     Route: 042

REACTIONS (3)
  - Rhabdomyolysis [Recovered/Resolved]
  - Generalised tonic-clonic seizure [Unknown]
  - Ischaemic cerebral infarction [Recovered/Resolved]
